FAERS Safety Report 8947975 (Version 1)
Quarter: 2012Q4

REPORT INFORMATION
  Report Type: Spontaneous
  Country: GB (occurrence: None)
  Receive Date: 20121127
  Receipt Date: 20121127
  Transmission Date: 20130627
  Serious: Yes (Other)
  Sender: FDA-Public Use
  Company Number: 2012-20192

PATIENT
  Age: 53 Year
  Sex: Female
  Weight: 77 kg

DRUGS (9)
  1. CITALOPRAM HYDROBROMIDE [Suspect]
     Indication: DRUG USE FOR UNKNOWN INDICATION
     Route: 048
     Dates: start: 20121015, end: 20121029
  2. PREMARIN (ESTROGENS CONJUGATED) [Concomitant]
  3. OMEPRAZOLE (OMEPRAZOLE) [Concomitant]
  4. TRAMADOL (TRAMADOL) [Concomitant]
  5. MORPHINE SULPHATE (MORPHINE SULFATE) [Concomitant]
  6. LISINOPRIL (LISINOPRIL) [Concomitant]
  7. MEBEVERINE HYDROCHLORIDE (MEBEVERINE HYDROCHLORIDE) [Concomitant]
  8. ETANERCEPT (ETANERCEPT) [Concomitant]
  9. CODEINE PHOSPHATE (CODEINE PHOSPHATE) [Concomitant]

REACTIONS (1)
  - Rheumatoid arthritis [None]
